FAERS Safety Report 22077960 (Version 1)
Quarter: 2023Q1

REPORT INFORMATION
  Report Type: Spontaneous
  Country: JP (occurrence: JP)
  Receive Date: 20230309
  Receipt Date: 20230309
  Transmission Date: 20230418
  Serious: Yes (Other)
  Sender: FDA-Public Use
  Company Number: JP-MYLANLABS-2023M1024163

PATIENT
  Age: 78 Year
  Sex: Female
  Weight: 30 kg

DRUGS (7)
  1. ACETAMINOPHEN [Suspect]
     Active Substance: ACETAMINOPHEN
     Indication: Product used for unknown indication
     Dosage: UNK
     Route: 065
  2. EPHEDRINE [Suspect]
     Active Substance: EPHEDRINE
     Indication: Product used for unknown indication
     Dosage: UNK
     Route: 065
  3. METHYLEPHEDRINE [Suspect]
     Active Substance: METHYLEPHEDRINE
     Indication: Product used for unknown indication
     Dosage: UNK
     Route: 065
  4. PILSICAINIDE [Interacting]
     Active Substance: PILSICAINIDE
     Indication: Arrhythmia
     Dosage: 150 MILLIGRAM, QD
     Route: 048
  5. VERAPAMIL [Interacting]
     Active Substance: VERAPAMIL HYDROCHLORIDE
     Indication: Arrhythmia
     Dosage: 40 MILLIGRAM, QD
     Route: 048
  6. FUROSEMIDE [Concomitant]
     Active Substance: FUROSEMIDE
     Indication: Cardiac failure chronic
     Dosage: 40 MILLIGRAM, QD
     Route: 048
  7. WARFARIN [Concomitant]
     Active Substance: WARFARIN
     Indication: Arrhythmia
     Dosage: 1 MILLIGRAM, QD
     Route: 048

REACTIONS (1)
  - Intentional product misuse [Unknown]
